FAERS Safety Report 5870337-8 (Version None)
Quarter: 2008Q3

REPORT INFORMATION
  Report Type: 
  Country: None (occurrence: None)
  Receive Date: 20080904
  Receipt Date: 20070920
  Transmission Date: 20090109
  Serious: No
  Sender: FDA-Public Use
  Company Number: US-BRISTOL-MYERS SQUIBB COMPANY-13914502

PATIENT
  Age: 84 Year
  Sex: Female
  Weight: 44 kg

DRUGS (2)
  1. DEFINITY [Suspect]
     Indication: ECHOCARDIOGRAM
     Route: 042
     Dates: start: 20070920, end: 20070920
  2. PROPRANOLOL [Concomitant]

REACTIONS (1)
  - BACK PAIN [None]
